FAERS Safety Report 6875112-3 (Version None)
Quarter: 2010Q3

REPORT INFORMATION
  Report Type: 
  Country: None (occurrence: None)
  Receive Date: 20100727
  Receipt Date: 20090217
  Transmission Date: 20110219
  Serious: Yes (Death, Hospitalization, Other)
  Sender: FDA-Public Use
  Company Number: US-PFIZER INC-2005130919

PATIENT
  Sex: Female
  Weight: 86 kg

DRUGS (3)
  1. CELEBREX [Suspect]
     Indication: ARTHRITIS
     Dosage: 200 MG, UNK
     Route: 048
     Dates: start: 19990315, end: 20041107
  2. ASPIRIN [Concomitant]
     Dosage: UNK
     Dates: start: 20040525, end: 20041101
  3. MORPHINE [Concomitant]
     Dosage: UNK
     Dates: start: 20040501, end: 20041101

REACTIONS (4)
  - ANXIETY [None]
  - CEREBROVASCULAR ACCIDENT [None]
  - DEPRESSION [None]
  - MYOCARDIAL INFARCTION [None]
